FAERS Safety Report 16269624 (Version 1)
Quarter: 2019Q2

REPORT INFORMATION
  Report Type: Spontaneous
  Country: US (occurrence: US)
  Receive Date: 20190503
  Receipt Date: 20190503
  Transmission Date: 20190711
  Serious: Yes (Hospitalization, Other)
  Sender: FDA-Public Use
  Company Number: US-MYLANLABS-2019M1041673

PATIENT
  Sex: Female

DRUGS (1)
  1. LOPERAMIDE [Suspect]
     Active Substance: LOPERAMIDE
     Indication: PRODUCT USED FOR UNKNOWN INDICATION
     Route: 065

REACTIONS (6)
  - Electrocardiogram QT prolonged [Unknown]
  - Ventricular tachycardia [Unknown]
  - Seizure [Unknown]
  - Torsade de pointes [Unknown]
  - Drug abuse [Unknown]
  - Nodal rhythm [Unknown]
